FAERS Safety Report 14329605 (Version 2)
Quarter: 2018Q1

REPORT INFORMATION
  Report Type: Spontaneous
  Country: US (occurrence: US)
  Receive Date: 20171227
  Receipt Date: 20180112
  Transmission Date: 20180509
  Serious: Yes (Other)
  Sender: FDA-Public Use
  Company Number: US-PFIZER INC-2017370525

PATIENT
  Age: 38 Year
  Sex: Female
  Weight: 53.52 kg

DRUGS (4)
  1. XELJANZ [Suspect]
     Active Substance: TOFACITINIB CITRATE
     Dosage: 5 MG, 2X/DAY
     Route: 048
  2. XELJANZ [Suspect]
     Active Substance: TOFACITINIB CITRATE
     Indication: CROHN^S DISEASE
     Dosage: 5 MG, [QTY 120 / DAY SUPPLY 30]
     Route: 048
  3. VALGANCICLOVIR. [Concomitant]
     Active Substance: VALGANCICLOVIR
     Dosage: UNK
  4. XELJANZ [Suspect]
     Active Substance: TOFACITINIB CITRATE
     Indication: COLITIS ULCERATIVE
     Dosage: 10 MG, 2X/DAY
     Route: 048

REACTIONS (3)
  - Product use in unapproved indication [Unknown]
  - Clostridium difficile infection [Unknown]
  - Prescribed overdose [Unknown]
